FAERS Safety Report 4485059-8 (Version None)
Quarter: 2004Q4

REPORT INFORMATION
  Report Type: 
  Country: None (occurrence: None)
  Receive Date: 20041022
  Receipt Date: 20041022
  Transmission Date: 20050328
  Serious: Yes (Other)
  Sender: FDA-Public Use
  Company Number: None

PATIENT
  Age: 65 Year
  Sex: Male
  Weight: 73 kg

DRUGS (15)
  1. CLINDAMYCIN HCL [Suspect]
  2. DIPHENHYDRAMINE ELIXER [Concomitant]
  3. ALBUTEROL [Concomitant]
  4. LACTOBACILLUS [Concomitant]
  5. CLINDAMYCIN HCL [Concomitant]
  6. WHITE PETROLATUM OINT [Concomitant]
  7. RANITIDINE SYRUP [Concomitant]
  8. SELENIUM SULFIDE [Concomitant]
  9. PHOSPHATE ENEMA [Concomitant]
  10. CLONAZEPAM [Concomitant]
  11. ASPIRIN [Concomitant]
  12. CLOTRIMAZOLE TOPICAL SOLUTION [Concomitant]
  13. . [Concomitant]
  14. SILVER SULFADIAZINE [Concomitant]
  15. COLLAGENASE OINT [Concomitant]

REACTIONS (1)
  - RASH [None]
